FAERS Safety Report 14248393 (Version 1)
Quarter: 2017Q4

REPORT INFORMATION
  Report Type: Spontaneous
  Country: US (occurrence: US)
  Receive Date: 20171204
  Receipt Date: 20171204
  Transmission Date: 20180321
  Serious: Yes (Death)
  Sender: FDA-Public Use
  Company Number: US-PROCTER+GAMBLE-GS17131345

PATIENT
  Age: 24 Year
  Sex: Female

DRUGS (9)
  1. INSULIN GLARGINE [Concomitant]
     Active Substance: INSULIN GLARGINE
     Dosage: 15-20 UNITS NIGHTLY
     Route: 058
  2. CARBAMAZEPINE. [Concomitant]
     Active Substance: CARBAMAZEPINE
     Dosage: 200 MILLIGRAM TWICE DAILY
     Route: 048
  3. TRAMADOL. [Concomitant]
     Active Substance: TRAMADOL
     Dosage: 50 MG ORALLY FOUR TIMES A DAY
     Route: 048
  4. HYDROCODONE W/ACETAMINOPHEN [Concomitant]
     Active Substance: ACETAMINOPHEN\HYDROCODONE BITARTRATE
     Indication: PAIN
     Dosage: 325/10 MILLIGRAM 6 TIMES A DAY AS NEEDED
     Route: 048
  5. FLUOXETINE [Suspect]
     Active Substance: FLUOXETINE HYDROCHLORIDE
     Dosage: UNKNOWN DOSE 3 TIMES A DAY
     Route: 048
  6. MORPHINE SULFATE. [Concomitant]
     Active Substance: MORPHINE SULFATE
     Dosage: 30 MG ORALLY TWICE DAILY
     Route: 048
  7. DIPHENHYDRAMINE HCL [Suspect]
     Active Substance: DIPHENHYDRAMINE HYDROCHLORIDE
  8. HYDROMORPHONE [Concomitant]
     Active Substance: HYDROMORPHONE
     Indication: PAIN
     Dosage: 4 MILLIGRAM ORALLY SIX TIMES A DAY, AS NEEDED FOR PAIN
     Route: 048
  9. MIRTAZAPINE. [Concomitant]
     Active Substance: MIRTAZAPINE
     Dosage: 30 MILLIGRAM NIGHTLY
     Route: 048

REACTIONS (32)
  - Gastrointestinal oedema [Unknown]
  - Ascites [Unknown]
  - Chronic hepatitis [Unknown]
  - Arrhythmia [Fatal]
  - Pancreatic abscess [Unknown]
  - Respiratory arrest [Unknown]
  - Sensory loss [Unknown]
  - Brain oedema [Unknown]
  - Leukocytosis [Unknown]
  - Pneumonia [Unknown]
  - Sepsis [Unknown]
  - Lung disorder [Unknown]
  - Cardiac septal hypertrophy [Unknown]
  - Cerebral atrophy [Unknown]
  - Hypoxic-ischaemic encephalopathy [Unknown]
  - Pyrexia [Unknown]
  - Tachycardia [Unknown]
  - Pancreatitis acute [Unknown]
  - Cardiac arrest [Unknown]
  - Respiratory failure [Unknown]
  - Hypotension [Unknown]
  - Cerebral disorder [Unknown]
  - Toxicity to various agents [Fatal]
  - Accidental overdose [Fatal]
  - Deafness bilateral [Unknown]
  - Abdominal pain [Unknown]
  - Left ventricular hypertrophy [Unknown]
  - Labelled drug-drug interaction medication error [Unknown]
  - Pancreatic disorder [Unknown]
  - Drug level increased [Fatal]
  - Paralysis [Unknown]
  - Bandaemia [Unknown]
